FAERS Safety Report 9368920 (Version 2)
Quarter: 2013Q3

REPORT INFORMATION
  Report Type: Spontaneous
  Country: US (occurrence: None)
  Receive Date: 20130624
  Receipt Date: 20130816
  Transmission Date: 20140515
  Serious: Yes (Death)
  Sender: FDA-Public Use
  Company Number: ADR-2013UNK121

PATIENT
  Age: 273 Day
  Sex: Male
  Weight: 3 kg

DRUGS (6)
  1. EFAVIRENZ TABS/(UNK MFR) [Suspect]
     Indication: ACQUIRED IMMUNODEFICIENCY SYNDROME
     Route: 048
     Dates: start: 20130517
  2. VIREAD, TDF [Concomitant]
  3. EMTRIVA, FTC [Concomitant]
  4. KALETRA, ALUVIA, LPV/R [Concomitant]
  5. NORVIR, RTV [Concomitant]
  6. REYATAZ, ATV [Concomitant]

REACTIONS (2)
  - Stillbirth [None]
  - Maternal drugs affecting foetus [None]
